FAERS Safety Report 10541443 (Version 2)
Quarter: 2014Q4

REPORT INFORMATION
  Report Type: Report from Study
  Country: CA (occurrence: CA)
  Receive Date: 20141024
  Receipt Date: 20141024
  Transmission Date: 20150529
  Serious: Yes (Hospitalization)
  Sender: FDA-Public Use
  Company Number: CA-BRISTOL-MYERS SQUIBB COMPANY-21371679

PATIENT
  Sex: Female

DRUGS (8)
  1. SYNTHROID [Concomitant]
     Active Substance: LEVOTHYROXINE SODIUM
  2. DOMPERIDONE [Concomitant]
     Active Substance: DOMPERIDONE
  3. CALCIUM [Concomitant]
     Active Substance: CALCIUM
  4. HYDROXYQUINOLINE SULFATE [Concomitant]
  5. ACETAMINOPHEN. [Concomitant]
     Active Substance: ACETAMINOPHEN
  6. PREDNISONE. [Concomitant]
     Active Substance: PREDNISONE
  7. DEXLANSOPRAZOLE [Concomitant]
     Active Substance: DEXLANSOPRAZOLE
  8. ABATACEPT [Suspect]
     Active Substance: ABATACEPT
     Indication: RHEUMATOID ARTHRITIS
     Dosage: 2 WEEKS
     Route: 042
     Dates: start: 20140902

REACTIONS (7)
  - Abdominal pain [Unknown]
  - Nervousness [Unknown]
  - Muscular weakness [Unknown]
  - Nausea [Unknown]
  - Abdominal pain upper [Unknown]
  - Palpitations [Unknown]
  - Ear infection [Unknown]

NARRATIVE: CASE EVENT DATE: 2014
